FAERS Safety Report 25216186 (Version 1)
Quarter: 2025Q2

REPORT INFORMATION
  Report Type: Spontaneous
  Country: IT (occurrence: IT)
  Receive Date: 20250418
  Receipt Date: 20250418
  Transmission Date: 20250716
  Serious: Yes (Hospitalization, Other)
  Sender: IPCA
  Company Number: IT-IPCA LABORATORIES LIMITED-IPC-2025-IT-000954

PATIENT

DRUGS (3)
  1. LAMOTRIGINE [Suspect]
     Active Substance: LAMOTRIGINE
     Indication: Product used for unknown indication
     Route: 065
  2. VALPROATE SODIUM [Suspect]
     Active Substance: VALPROATE SODIUM
     Indication: Product used for unknown indication
     Route: 065
  3. ARIPIPRAZOLE [Concomitant]
     Active Substance: ARIPIPRAZOLE
     Indication: Product used for unknown indication
     Route: 065

REACTIONS (7)
  - Rash [Recovered/Resolved]
  - Hepatomegaly [Recovered/Resolved]
  - Jaundice [Recovered/Resolved]
  - Agitation [Recovered/Resolved]
  - Pyrexia [Recovered/Resolved]
  - Liver function test increased [Recovered/Resolved]
  - Hepatitis cholestatic [Recovered/Resolved]
